FAERS Safety Report 5505216-9 (Version None)
Quarter: 2007Q4

REPORT INFORMATION
  Report Type: 
  Country: None (occurrence: None)
  Receive Date: 20071031
  Receipt Date: 20071018
  Transmission Date: 20080405
  Serious: Yes (Other)
  Sender: FDA-Public Use
  Company Number: 2007333643

PATIENT
  Age: 11 Year
  Sex: Male

DRUGS (3)
  1. LISTERINE AGENT COOL BLUE GLACIER MINT           (NO ACTIVE INGREDIENT [Suspect]
     Dosage: ORAL
     Route: 048
     Dates: start: 20070206
  2. IMODIUM [Suspect]
     Indication: DIARRHOEA
     Dosage: 1-2 OID PRN (12.5 MG), OPHTHALMIC
     Route: 047
  3. PHENERGAN                    (PROMETHAZINE HYDROCHLORIDE) [Suspect]
     Indication: NAUSEA
     Dosage: 1 QID PRN (2 MG, 1 IN 1 D),  ORAL
     Route: 048

REACTIONS (18)
  - ABDOMINAL PAIN [None]
  - ABDOMINAL TENDERNESS [None]
  - ANOREXIA [None]
  - BLINDNESS TRANSIENT [None]
  - DIARRHOEA [None]
  - DIZZINESS [None]
  - GASTRITIS [None]
  - GASTRODUODENITIS [None]
  - HEADACHE [None]
  - MALAISE [None]
  - NAUSEA [None]
  - PHARYNGOLARYNGEAL PAIN [None]
  - PRODUCTIVE COUGH [None]
  - RHINORRHOEA [None]
  - SINUS HEADACHE [None]
  - VIRAL INFECTION [None]
  - VOMITING [None]
  - WEIGHT DECREASED [None]
